FAERS Safety Report 6404706-4 (Version None)
Quarter: 2009Q4

REPORT INFORMATION
  Report Type: 
  Country: None (occurrence: None)
  Receive Date: 20091016
  Receipt Date: 20091006
  Transmission Date: 20100525
  Serious: Yes (Other)
  Sender: FDA-Public Use
  Company Number: GB-JNJFOC-20090803759

PATIENT
  Age: 34 Year
  Sex: Female

DRUGS (5)
  1. UNKNOWN PROPRIETARY IBUPROFEN PRODUCT [Suspect]
     Route: 065
  2. UNKNOWN PROPRIETARY IBUPROFEN PRODUCT [Suspect]
     Indication: NECK PAIN
     Dosage: REGULARLY,UP TO ONSET OF SYMPTOMS, PAIN FROM STRAINED NECK
     Route: 065
  3. PREDNISOLONE [Concomitant]
     Route: 065
  4. AZATHIOPRINE [Concomitant]
     Route: 065
  5. CYCLOSPORINE [Concomitant]
     Route: 065

REACTIONS (6)
  - ALBUMINURIA [None]
  - HAEMATURIA [None]
  - MALAISE [None]
  - NEPHRITIS [None]
  - OEDEMA [None]
  - PAIN [None]
